FAERS Safety Report 4789577-4 (Version None)
Quarter: 2005Q4

REPORT INFORMATION
  Report Type: 
  Country: None (occurrence: None)
  Receive Date: 20051005
  Receipt Date: 20051005
  Transmission Date: 20060501
  Serious: Yes (Hospitalization)
  Sender: FDA-Public Use
  Company Number: None

PATIENT
  Age: 59 Year
  Sex: Male
  Weight: 84 kg

DRUGS (13)
  1. ABELCET [Suspect]
     Indication: FUNGAEMIA
     Dosage: 270 MG IV QD
     Route: 042
     Dates: start: 20050306, end: 20050313
  2. AMIODARONE [Concomitant]
  3. TACROLIMUS [Concomitant]
  4. AMLODIPINE [Concomitant]
  5. ASPIRIN [Concomitant]
  6. ATORVASTATIN [Concomitant]
  7. CEFEPIME [Concomitant]
  8. SYNERCID [Concomitant]
  9. BACTRIM [Concomitant]
  10. GANCICLOVIR [Concomitant]
  11. GABAPENTIN [Concomitant]
  12. SERTRALINE HCL [Concomitant]
  13. LANSOPRAZOLE [Concomitant]

REACTIONS (1)
  - BLOOD CREATININE INCREASED [None]
